FAERS Safety Report 7723556-X (Version None)
Quarter: 2011Q3

REPORT INFORMATION
  Report Type: 
  Country: None (occurrence: None)
  Receive Date: 20110901
  Receipt Date: 20110825
  Transmission Date: 20111222
  Serious: Yes (Hospitalization)
  Sender: FDA-Public Use
  Company Number: NL-JNJFOC-20110604279

PATIENT
  Sex: Female
  Weight: 55 kg

DRUGS (2)
  1. TYSABRI [Concomitant]
     Indication: MULTIPLE SCLEROSIS
     Dates: start: 20091224
  2. REMICADE [Suspect]
     Indication: WRONG DRUG ADMINISTERED
     Route: 042
     Dates: start: 20110607, end: 20110607

REACTIONS (1)
  - WRONG DRUG ADMINISTERED [None]
